FAERS Safety Report 4367856-2 (Version None)
Quarter: 2004Q2

REPORT INFORMATION
  Report Type: 
  Country: None (occurrence: None)
  Receive Date: 20040601
  Receipt Date: 20040601
  Transmission Date: 20050107
  Serious: No
  Sender: FDA-Public Use
  Company Number: None

PATIENT
  Age: 81 Year
  Sex: Male
  Weight: 119.7496 kg

DRUGS (17)
  1. VANCOMYCIN [Suspect]
     Indication: LIFE SUPPORT
     Dosage: 1000 MG QD INTRAVENOUS
     Route: 042
     Dates: start: 20040208, end: 20040305
  2. VANCOMYCIN [Suspect]
     Indication: PNEUMONIA
     Dosage: 1000 MG QD INTRAVENOUS
     Route: 042
     Dates: start: 20040208, end: 20040305
  3. ZOSYN [Concomitant]
  4. IMIPENEM [Concomitant]
  5. AMIODARONE HCL [Concomitant]
  6. FENOFIBRATE [Concomitant]
  7. APAP TAB [Concomitant]
  8. ALBUTEROL [Concomitant]
  9. EPOGEN [Concomitant]
  10. FES04 [Concomitant]
  11. FLUNISOLIDE [Concomitant]
  12. HEPARIN [Concomitant]
  13. LOPERAMIDE HCL [Concomitant]
  14. MOM [Concomitant]
  15. TNG [Concomitant]
  16. KCL TAB [Concomitant]
  17. TRIAMCINOLONE CREAM [Concomitant]

REACTIONS (5)
  - BLISTER [None]
  - MULTI-ORGAN FAILURE [None]
  - RASH [None]
  - RENAL TUBULAR NECROSIS [None]
  - SKIN DESQUAMATION [None]
